FAERS Safety Report 5817820-9 (Version None)
Quarter: 2008Q3

REPORT INFORMATION
  Report Type: 
  Country: None (occurrence: None)
  Receive Date: 20080722
  Receipt Date: 20080715
  Transmission Date: 20090109
  Serious: Yes (Hospitalization)
  Sender: FDA-Public Use
  Company Number: US-AVENTIS-200816756GDDC

PATIENT
  Age: 66 Year
  Sex: Female

DRUGS (7)
  1. TAXOTERE [Suspect]
     Indication: BREAST CANCER
     Route: 042
     Dates: end: 20080108
  2. CYTOXAN [Suspect]
     Indication: BREAST CANCER
     Route: 042
     Dates: end: 20080108
  3. ATIVAN [Concomitant]
  4. CARDIZEM [Concomitant]
  5. PRILOSEC [Concomitant]
  6. DOXYCYCLINE HCL [Concomitant]
  7. NEULASTA [Concomitant]

REACTIONS (3)
  - HYPOKALAEMIA [None]
  - PYREXIA [None]
  - WOUND INFECTION STAPHYLOCOCCAL [None]
